FAERS Safety Report 12204669 (Version 3)
Quarter: 2016Q2

REPORT INFORMATION
  Report Type: Report from Study
  Country: US (occurrence: US)
  Receive Date: 20160323
  Receipt Date: 20160427
  Transmission Date: 20160815
  Serious: Yes (Death, Hospitalization)
  Sender: FDA-Public Use
  Company Number: US-ACTELION-A-US2016-132638

PATIENT
  Age: 64 Year
  Sex: Female

DRUGS (1)
  1. VELETRI [Suspect]
     Active Substance: EPOPROSTENOL
     Indication: PULMONARY HYPERTENSION
     Dosage: 2 NG/KG, PER MIN
     Route: 042
     Dates: start: 20160210, end: 20160309

REACTIONS (6)
  - Endotracheal intubation [Unknown]
  - Septic shock [Fatal]
  - Device related infection [Unknown]
  - Pulmonary arterial hypertension [Unknown]
  - Sepsis [Unknown]
  - Headache [Unknown]

NARRATIVE: CASE EVENT DATE: 20160315
